FAERS Safety Report 18831008 (Version 5)
Quarter: 2021Q3

REPORT INFORMATION
  Report Type: Report from Study
  Country: None (occurrence: US)
  Receive Date: 20210203
  Receipt Date: 20210918
  Transmission Date: 20211014
  Serious: Yes (Hospitalization)
  Sender: FDA-Public Use
  Company Number: US-ABBVIE-20P-163-3384539-00

PATIENT
  Age: 72 Year
  Sex: Female

DRUGS (9)
  1. IMBRUVICA [Suspect]
     Active Substance: IBRUTINIB
     Route: 048
  2. IMBRUVICA [Suspect]
     Active Substance: IBRUTINIB
     Route: 048
  3. MODERNA COVID?19 VACCINE [Concomitant]
     Active Substance: CX-024414
     Indication: COVID-19 IMMUNISATION
     Dosage: 1 DOSE
     Route: 030
     Dates: start: 20210302, end: 20210302
  4. CAFFEINE. [Suspect]
     Active Substance: CAFFEINE
     Indication: PRODUCT USED FOR UNKNOWN INDICATION
     Route: 048
  5. MODERNA COVID?19 VACCINE [Concomitant]
     Active Substance: CX-024414
     Dosage: 1 DOSE
     Route: 030
     Dates: start: 20210323, end: 20210323
  6. IMBRUVICA [Suspect]
     Active Substance: IBRUTINIB
     Indication: CHRONIC LYMPHOCYTIC LEUKAEMIA
     Route: 048
     Dates: start: 20170901
  7. IMBRUVICA [Suspect]
     Active Substance: IBRUTINIB
     Indication: CHRONIC LYMPHOCYTIC LEUKAEMIA
     Route: 048
  8. IMBRUVICA [Suspect]
     Active Substance: IBRUTINIB
     Route: 048
  9. IMBRUVICA [Suspect]
     Active Substance: IBRUTINIB
     Route: 048

REACTIONS (32)
  - Depression [Unknown]
  - Sinus disorder [Unknown]
  - Weight decreased [Unknown]
  - Furuncle [Unknown]
  - Anxiety [Not Recovered/Not Resolved]
  - Nerve compression [Unknown]
  - Foot fracture [Recovering/Resolving]
  - Somnolence [Not Recovered/Not Resolved]
  - Depressed mood [Unknown]
  - Hypertension [Unknown]
  - Cardiac failure congestive [Unknown]
  - Pain [Not Recovered/Not Resolved]
  - Dry mouth [Recovering/Resolving]
  - Lymphoedema [Recovering/Resolving]
  - Skin disorder [Recovered/Resolved]
  - Cough [Unknown]
  - Fall [Recovering/Resolving]
  - Diabetes mellitus [Not Recovered/Not Resolved]
  - Throat irritation [Unknown]
  - Limb discomfort [Unknown]
  - Sensitivity to weather change [Unknown]
  - Cholelithiasis [Recovering/Resolving]
  - White blood cell count abnormal [Unknown]
  - Seasonal allergy [Unknown]
  - Muscle spasms [Not Recovered/Not Resolved]
  - Arthralgia [Recovering/Resolving]
  - Arthralgia [Unknown]
  - Oedema peripheral [Recovering/Resolving]
  - Glycosylated haemoglobin decreased [Unknown]
  - Weight increased [Unknown]
  - Erythema [Unknown]
  - Diarrhoea [Not Recovered/Not Resolved]

NARRATIVE: CASE EVENT DATE: 202104
